FAERS Safety Report 21285581 (Version 1)
Quarter: 2022Q3

REPORT INFORMATION
  Report Type: Spontaneous
  Country: US (occurrence: None)
  Receive Date: 20220901
  Receipt Date: 20220901
  Transmission Date: 20221027
  Serious: No
  Sender: FDA-Public Use
  Company Number: None

PATIENT
  Age: 72 Year
  Sex: Female

DRUGS (1)
  1. STELARA [Suspect]
     Active Substance: USTEKINUMAB
     Indication: Psoriasis
     Dosage: 90MG EVERY 8 WEEKS SUBCUTANEOUS?
     Route: 058
     Dates: start: 20210722

REACTIONS (3)
  - Needle issue [None]
  - Device defective [None]
  - Therapy interrupted [None]

NARRATIVE: CASE EVENT DATE: 20220901
